FAERS Safety Report 5463103-9 (Version None)
Quarter: 2007Q3

REPORT INFORMATION
  Report Type: 
  Country: None (occurrence: None)
  Receive Date: 20070918
  Receipt Date: 20070918
  Transmission Date: 20080115
  Serious: No
  Sender: FDA-Public Use
  Company Number: None

PATIENT
  Age: 79 Year
  Sex: Male
  Weight: 78.9259 kg

DRUGS (1)
  1. FLOMAX [Suspect]
     Indication: URINE FLOW DECREASED
     Dates: start: 20070709, end: 20070916

REACTIONS (3)
  - ERECTION INCREASED [None]
  - VISUAL DISTURBANCE [None]
  - VITREOUS FLOATERS [None]
